FAERS Safety Report 17665872 (Version 1)
Quarter: 2020Q2

REPORT INFORMATION
  Report Type: Spontaneous
  Country: US (occurrence: US)
  Receive Date: 20200413
  Receipt Date: 20200413
  Transmission Date: 20200713
  Serious: Yes (Other)
  Sender: FDA-Public Use
  Company Number: None

PATIENT
  Age: 54 Year
  Sex: Male
  Weight: 33.57 kg

DRUGS (1)
  1. TEMOZOLOMIDE. [Suspect]
     Active Substance: TEMOZOLOMIDE
     Indication: SKIN CANCER
     Dosage: ?          OTHER FREQUENCY:QDX 14 DAYS ONLY ;?
     Route: 048
     Dates: start: 20200124, end: 20200319

REACTIONS (2)
  - Nightmare [None]
  - Night sweats [None]

NARRATIVE: CASE EVENT DATE: 20200409
